FAERS Safety Report 5367038-1 (Version None)
Quarter: 2007Q2

REPORT INFORMATION
  Report Type: 
  Country: None (occurrence: None)
  Receive Date: 20070622
  Receipt Date: 20070619
  Transmission Date: 20071010
  Serious: Yes (Death, Hospitalization)
  Sender: FDA-Public Use
  Company Number: A0658265A

PATIENT
  Age: 72 Year
  Sex: Female

DRUGS (17)
  1. AVANDIA [Suspect]
     Dosage: 2MG TWICE PER DAY
     Route: 048
  2. PACERONE [Suspect]
  3. GLIPIZIDE [Concomitant]
  4. AVAPRO [Concomitant]
  5. ATENOLOL [Concomitant]
  6. NORVASC [Concomitant]
  7. SYNTHROID [Concomitant]
  8. TRICOR [Concomitant]
  9. ULTRACET [Concomitant]
  10. NEURONTIN [Concomitant]
  11. AMITRIPTYLINE HCL [Concomitant]
  12. HYDROCHLOROTHIAZIDE [Concomitant]
  13. ASPIRIN [Concomitant]
  14. CRANBERRY TABLETS [Concomitant]
  15. STRESS TAB [Concomitant]
  16. XALATAN [Concomitant]
  17. TIMOPTIC [Concomitant]

REACTIONS (4)
  - ATRIAL FIBRILLATION [None]
  - DYSPNOEA [None]
  - PULMONARY FIBROSIS [None]
  - PULMONARY OEDEMA [None]
